FAERS Safety Report 8036440 (Version 2)
Quarter: 2012Q4

REPORT INFORMATION
  Report Type: 
  Country: JP (occurrence: JP)
  Receive Date: 20110715
  Receipt Date: 20121101
  Transmission Date: 20130627
  Serious: Yes (Other)
  Sender: FDA-Public Use
  Company Number: JP-ELI_LILLY_AND_COMPANY-JP201107002115

PATIENT
  Age: 63 Year
  Sex: Female
  Weight: 34 kg

DRUGS (3)
  1. GEMZAR [Suspect]
     Indication: PANCREATIC CARCINOMA
     Dosage: UNK UNK, unknown
     Route: 042
     Dates: start: 200708, end: 200807
  2. GEMZAR [Suspect]
     Dosage: 500 mg/m2, unknown
     Route: 042
     Dates: start: 200808
  3. ERLOTINIB [Concomitant]
     Indication: PANCREATIC CARCINOMA
     Dosage: UNK
     Route: 065
     Dates: start: 200708, end: 200807

REACTIONS (5)
  - Chronic obstructive pulmonary disease [Recovering/Resolving]
  - Asthma [Recovering/Resolving]
  - Cardiac failure [Recovering/Resolving]
  - Interstitial lung disease [Recovering/Resolving]
  - Adverse reaction [Unknown]
